FAERS Safety Report 5589842-7 (Version None)
Quarter: 2008Q1

REPORT INFORMATION
  Report Type: 
  Country: None (occurrence: None)
  Receive Date: 20080114
  Receipt Date: 20080104
  Transmission Date: 20080703
  Serious: Yes (Other)
  Sender: FDA-Public Use
  Company Number: US-MERCK-0801USA01216

PATIENT
  Age: 73 Year
  Sex: Male

DRUGS (1)
  1. ZETIA [Suspect]
     Indication: BLOOD CHOLESTEROL INCREASED
     Route: 048

REACTIONS (10)
  - ALOPECIA [None]
  - BLINDNESS TRANSIENT [None]
  - DYSSTASIA [None]
  - FATIGUE [None]
  - FEELING ABNORMAL [None]
  - HYPOTONIA [None]
  - LIBIDO DECREASED [None]
  - MUSCLE SPASMS [None]
  - PAIN [None]
  - VERTIGO [None]
